FAERS Safety Report 23145566 (Version 5)
Quarter: 2023Q4

REPORT INFORMATION
  Report Type: Spontaneous
  Country: ES (occurrence: ES)
  Receive Date: 20231103
  Receipt Date: 20231228
  Transmission Date: 20240109
  Serious: Yes (Other)
  Sender: FDA-Public Use
  Company Number: ES-BIOVITRUM-2023-ES-017128

PATIENT

DRUGS (1)
  1. PEGCETACOPLAN [Suspect]
     Active Substance: PEGCETACOPLAN
     Indication: Paroxysmal nocturnal haemoglobinuria
     Dosage: 24-OCT-2023: THE HEMATOLOGIST DECIDED TO ADMINISTER PEGCETACOPLAN FOR 3 CONSECUTIVE DAYS
     Dates: start: 20230111

REACTIONS (7)
  - Haemolysis [Recovered/Resolved]
  - COVID-19 [Unknown]
  - Chest pain [Unknown]
  - Incorrect dose administered [Unknown]
  - Influenza [Unknown]
  - Discomfort [Unknown]
  - Haemolysis [Recovering/Resolving]

NARRATIVE: CASE EVENT DATE: 20231001
